FAERS Safety Report 8929171 (Version 2)
Quarter: 2013Q2

REPORT INFORMATION
  Report Type: Spontaneous
  Country: JP (occurrence: JP)
  Receive Date: 20121127
  Receipt Date: 20130501
  Transmission Date: 20140414
  Serious: Yes (Hospitalization, Other)
  Sender: FDA-Public Use
  Company Number: PHHY2012JP106669

PATIENT
  Age: 85 Year
  Sex: Male

DRUGS (7)
  1. PACLITAXEL [Suspect]
     Indication: METASTASES TO LIVER
     Dosage: 120 MG/ BODY EVERY WEEK; 3 WEEKS ON MEDICATION WITH 1 WEEK DRUG HOLIDAY
  2. CISPLATIN [Suspect]
     Dosage: 8 MG, UNK
  3. CISPLATIN [Suspect]
     Dosage: 40 MG, UNK
  4. 5-FLUOROURACIL [Suspect]
     Dosage: 250 MG, UNK
  5. 5-FLUOROURACIL [Suspect]
     Dosage: 1250 MG, UNK
  6. DOCETAXEL [Suspect]
  7. S-1 [Suspect]
     Dosage: 80 MG/ BODY

REACTIONS (7)
  - Feeding disorder [Recovered/Resolved]
  - Stomatitis [Recovered/Resolved]
  - Decreased appetite [Recovered/Resolved]
  - Malignant neoplasm progression [Recovered/Resolved]
  - Metastases to lung [Recovered/Resolved]
  - Metastases to lymph nodes [Recovered/Resolved]
  - Drug ineffective [Unknown]
